FAERS Safety Report 16749114 (Version 2)
Quarter: 2020Q2

REPORT INFORMATION
  Report Type: Report from Study
  Country: US (occurrence: US)
  Receive Date: 20190828
  Receipt Date: 20200601
  Transmission Date: 20200713
  Serious: Yes (Hospitalization, Other)
  Sender: FDA-Public Use
  Company Number: US-ROCHE-1992360

PATIENT
  Sex: Female

DRUGS (57)
  1. CLARITIN [Concomitant]
     Active Substance: LORATADINE
  2. SUCRALFATE. [Concomitant]
     Active Substance: SUCRALFATE
     Route: 065
  3. ZOFRAN [Concomitant]
     Active Substance: ONDANSETRON HYDROCHLORIDE
     Route: 065
  4. PERCOCET [Concomitant]
     Active Substance: ACETAMINOPHEN\OXYCODONE HYDROCHLORIDE
     Dosage: 5/325 MG
     Route: 065
  5. PULMOZYME [Suspect]
     Active Substance: DORNASE ALFA
     Indication: POLYNEUROPATHY ALCOHOLIC
  6. BACTRIM DS [Concomitant]
     Active Substance: SULFAMETHOXAZOLE\TRIMETHOPRIM
     Route: 048
  7. LEVOTHYROXINE. [Concomitant]
     Active Substance: LEVOTHYROXINE
     Route: 065
  8. FORMOTEROL [Concomitant]
     Active Substance: FORMOTEROL
  9. BUDESONIDE. [Concomitant]
     Active Substance: BUDESONIDE
  10. XOLAIR [Suspect]
     Active Substance: OMALIZUMAB
     Indication: BRONCHITIS CHRONIC
     Route: 065
  11. XOLAIR [Suspect]
     Active Substance: OMALIZUMAB
     Indication: ASTHMA
  12. AMITRIPTYLINE [Concomitant]
     Active Substance: AMITRIPTYLINE
     Route: 065
  13. SINGULAIR [Concomitant]
     Active Substance: MONTELUKAST SODIUM
     Route: 065
  14. CRESTOR [Concomitant]
     Active Substance: ROSUVASTATIN CALCIUM
     Route: 065
  15. OXYCONTIN [Concomitant]
     Active Substance: OXYCODONE HYDROCHLORIDE
     Route: 065
  16. RANITIDINE. [Concomitant]
     Active Substance: RANITIDINE
     Dosage: EVERY AM AND H. S.
     Route: 065
  17. SUDAFED [Concomitant]
     Active Substance: PSEUDOEPHEDRINE HYDROCHLORIDE
     Route: 065
  18. PULMOZYME [Suspect]
     Active Substance: DORNASE ALFA
     Indication: BRONCHIECTASIS
     Dosage: INHALATION SOLUTION
     Route: 065
  19. PULMOZYME [Suspect]
     Active Substance: DORNASE ALFA
     Indication: BRONCHIECTASIS
  20. PULMOZYME [Suspect]
     Active Substance: DORNASE ALFA
     Indication: FIBROMYALGIA
  21. PREDNISONE. [Concomitant]
     Active Substance: PREDNISONE
     Route: 065
  22. HYDRALAZINE [Concomitant]
     Active Substance: HYDRALAZINE HYDROCHLORIDE
     Route: 065
  23. INSULIN [Concomitant]
     Active Substance: INSULIN NOS
  24. TRAMADOL. [Concomitant]
     Active Substance: TRAMADOL
     Route: 065
  25. PULMOZYME [Suspect]
     Active Substance: DORNASE ALFA
     Indication: TACHYCARDIA PAROXYSMAL
  26. PULMOZYME [Suspect]
     Active Substance: DORNASE ALFA
     Indication: SLEEP APNOEA SYNDROME
  27. DIFLUCAN [Concomitant]
     Active Substance: FLUCONAZOLE
     Route: 065
  28. LEVEMIR [Concomitant]
     Active Substance: INSULIN DETEMIR
     Dosage: 65 UNITS EVERY AM ANF H. S.
     Route: 065
  29. ESOMEPRAZOLE. [Concomitant]
     Active Substance: ESOMEPRAZOLE MAGNESIUM
     Route: 065
  30. MUCINEX [Concomitant]
     Active Substance: GUAIFENESIN
     Route: 065
  31. PULMOZYME [Suspect]
     Active Substance: DORNASE ALFA
     Indication: ASTHMA
  32. PULMOZYME [Suspect]
     Active Substance: DORNASE ALFA
     Indication: ESSENTIAL HYPERTENSION
  33. PULMOZYME [Suspect]
     Active Substance: DORNASE ALFA
     Indication: DIABETES MELLITUS
  34. PULMOZYME [Suspect]
     Active Substance: DORNASE ALFA
     Indication: HYPERLIPIDAEMIA
  35. PULMOZYME [Suspect]
     Active Substance: DORNASE ALFA
     Indication: ANAEMIA
  36. PREDNISONE. [Concomitant]
     Active Substance: PREDNISONE
     Route: 065
  37. BIOTIN [Concomitant]
     Active Substance: BIOTIN
  38. REGLAN [Concomitant]
     Active Substance: METOCLOPRAMIDE HYDROCHLORIDE
     Route: 065
  39. FASENRA [Concomitant]
     Active Substance: BENRALIZUMAB
  40. PULMOZYME [Suspect]
     Active Substance: DORNASE ALFA
     Indication: ARTHRITIS
  41. PULMOZYME [Suspect]
     Active Substance: DORNASE ALFA
     Indication: SENILE OSTEOPOROSIS
  42. PULMOZYME [Suspect]
     Active Substance: DORNASE ALFA
     Indication: PATHOLOGICAL FRACTURE
  43. FLONASE [Concomitant]
     Active Substance: FLUTICASONE PROPIONATE
     Dosage: 2 SPARYS EACH DAY
     Route: 065
  44. XOPENEX [Concomitant]
     Active Substance: LEVALBUTEROL HYDROCHLORIDE
     Route: 065
  45. COENZYME Q10 [Concomitant]
     Active Substance: UBIDECARENONE
  46. FISH OIL [Concomitant]
     Active Substance: FISH OIL
     Route: 065
  47. FLEXERIL [Concomitant]
     Active Substance: CYCLOBENZAPRINE HYDROCHLORIDE
     Route: 065
  48. LISINOPRIL. [Concomitant]
     Active Substance: LISINOPRIL
  49. PULMICORT TURBUHALER [Concomitant]
     Active Substance: BUDESONIDE
     Route: 065
  50. ALDACTONE [Concomitant]
     Active Substance: SPIRONOLACTONE
  51. CLONIDINE. [Concomitant]
     Active Substance: CLONIDINE
     Route: 065
  52. MIRALAX [Concomitant]
     Active Substance: POLYETHYLENE GLYCOL 3350
     Route: 065
  53. PROVIGIL [Concomitant]
     Active Substance: MODAFINIL
     Dosage: 1 AND HALF TABLET DAILY
     Route: 065
  54. FLURINOL [Concomitant]
     Active Substance: EPINASTINE HYDROCHLORIDE
  55. XANAX [Concomitant]
     Active Substance: ALPRAZOLAM
     Route: 065
  56. ZAROXOLYN [Concomitant]
     Active Substance: METOLAZONE
     Route: 065
  57. LASIX [Concomitant]
     Active Substance: FUROSEMIDE
     Indication: OEDEMA PERIPHERAL

REACTIONS (8)
  - Pneumonia [Unknown]
  - Impaired gastric emptying [Unknown]
  - Bronchiectasis [Unknown]
  - Respiratory failure [Unknown]
  - Secretion discharge [Unknown]
  - Feeling abnormal [Unknown]
  - Intentional product use issue [Unknown]
  - Off label use [Unknown]
